FAERS Safety Report 8441026 (Version 4)
Quarter: 2013Q4

REPORT INFORMATION
  Report Type: Spontaneous
  Country: FR (occurrence: None)
  Receive Date: 20120223
  Receipt Date: 20131024
  Transmission Date: 20140711
  Serious: Yes (Hospitalization)
  Sender: FDA-Public Use
  Company Number: JPI-P-019827

PATIENT
  Age: 64 Year
  Sex: Male

DRUGS (5)
  1. XYREM [Suspect]
     Indication: CATAPLEXY
     Route: 048
     Dates: start: 20110608, end: 20110618
  2. XYREM [Suspect]
     Indication: NARCOLEPSY
     Route: 048
     Dates: start: 20110608, end: 20110618
  3. MODAFINIL (MODAFINIL) [Concomitant]
  4. MENTHOL W/METHYL SALICYLATE (MENTHOL) [Concomitant]
  5. ALFUZOSIN (ALFUZOSIN) [Concomitant]

REACTIONS (7)
  - Hyperhidrosis [None]
  - Dysuria [None]
  - Hypertonic bladder [None]
  - Decreased appetite [None]
  - Rotator cuff syndrome [None]
  - Pruritus [None]
  - Depression [None]
